FAERS Safety Report 17303472 (Version 3)
Quarter: 2020Q1

REPORT INFORMATION
  Report Type: Report from Study
  Country: CA (occurrence: CA)
  Receive Date: 20200122
  Receipt Date: 20200319
  Transmission Date: 20200409
  Serious: Yes (Other)
  Sender: FDA-Public Use
  Company Number: CA-NALPROPION PHARMACEUTICALS INC.-2020-009453

PATIENT

DRUGS (9)
  1. CONTRAVE [Suspect]
     Active Substance: BUPROPION HYDROCHLORIDE\NALTREXONE HYDROCHLORIDE
     Dosage: 90/8 MG, 2 TABLETS IN MORNING AND 1 TABLET IN EVENING
     Route: 048
     Dates: start: 20200205, end: 20200218
  2. CONTRAVE [Suspect]
     Active Substance: BUPROPION HYDROCHLORIDE\NALTREXONE HYDROCHLORIDE
     Indication: WEIGHT CONTROL
     Dosage: STRENGTH: 90/8 MG, 1 TABLET IN MORNING, START DATE: APPROX. 20/NOV/2019, END: APPROX. 26/NOV/2019
     Route: 048
     Dates: start: 201911, end: 201911
  3. CONTRAVE [Suspect]
     Active Substance: BUPROPION HYDROCHLORIDE\NALTREXONE HYDROCHLORIDE
     Dosage: 90/8 MG, 1 TABLET MORNING AND 1 TABLET IN EVENING
     Route: 048
     Dates: start: 20200123, end: 20200204
  4. BUPROPION. [Suspect]
     Active Substance: BUPROPION
     Indication: DEPRESSION
     Dosage: 300 MG, 1 IN 1 D
     Route: 048
  5. CONTRAVE [Suspect]
     Active Substance: BUPROPION HYDROCHLORIDE\NALTREXONE HYDROCHLORIDE
     Dosage: 90/8 MG, 1 TABLET MORNING, 1 TABLET EVENING, START: APPROX. 27/NOV/2019, END: APPROX. 02/DEC/2019
     Route: 048
     Dates: start: 201911, end: 201912
  6. CONTRAVE [Suspect]
     Active Substance: BUPROPION HYDROCHLORIDE\NALTREXONE HYDROCHLORIDE
     Dosage: 90/8 MG, 1 TABLET MORNING SECOND ATTEMPT
     Route: 048
     Dates: start: 20200109, end: 20200122
  7. DULOXETINE. [Concomitant]
     Active Substance: DULOXETINE
     Indication: DEPRESSION
     Dosage: 90 MG, 1 IN 1 D
     Route: 048
  8. OLMESARTAN [Concomitant]
     Active Substance: OLMESARTAN
     Indication: HYPERTENSION
     Dosage: 40 MG, 1 IN 1 D
     Route: 048
  9. CONTRAVE [Suspect]
     Active Substance: BUPROPION HYDROCHLORIDE\NALTREXONE HYDROCHLORIDE
     Dosage: 90/8 MG, 2 TABLETS IN MORNING AND 2 TABLETS IN EVENING
     Route: 048
     Dates: start: 20200219

REACTIONS (11)
  - Knee arthroplasty [Unknown]
  - Memory impairment [Unknown]
  - Patient dissatisfaction with treatment [Unknown]
  - Abdominal pain lower [Unknown]
  - Drug titration error [Unknown]
  - Loss of dreaming [Unknown]
  - Constipation [Unknown]
  - Pain [Unknown]
  - Abdominal pain upper [Recovered/Resolved]
  - Diarrhoea [Unknown]
  - Sleep disorder [Unknown]

NARRATIVE: CASE EVENT DATE: 2019
